FAERS Safety Report 14647132 (Version 2)
Quarter: 2018Q1

REPORT INFORMATION
  Report Type: Spontaneous
  Country: IT (occurrence: IT)
  Receive Date: 20180316
  Receipt Date: 20180320
  Transmission Date: 20180509
  Serious: Yes (Other)
  Sender: FDA-Public Use
  Company Number: IT-ACCORD-064533

PATIENT
  Age: 19 Year
  Sex: Female

DRUGS (24)
  1. VINCRISTINE [Suspect]
     Active Substance: VINCRISTINE
     Indication: ACUTE LYMPHOCYTIC LEUKAEMIA
     Dosage: MAX 2 MG, INFUSION TIME: PUSH, DAY 1, 8, 15, 22
     Route: 042
  2. CYCLOPHOSPHAMIDE. [Suspect]
     Active Substance: CYCLOPHOSPHAMIDE
     Dosage: 1000 MG/M2
     Route: 042
  3. PREDNISONE. [Suspect]
     Active Substance: PREDNISONE
     Indication: ACUTE LYMPHOCYTIC LEUKAEMIA
     Dosage: 20 MG/M2 BID ((QL 2 H CYCLIC)
     Route: 048
  4. BLINCYTO [Suspect]
     Active Substance: BLINATUMOMAB
     Indication: ACUTE LYMPHOCYTIC LEUKAEMIA
     Route: 042
     Dates: start: 20161220
  5. INOTUZUMAB [Concomitant]
     Active Substance: INOTUZUMAB OZOGAMICIN
     Dosage: UNK.
  6. FILGRASTIM [Suspect]
     Active Substance: FILGRASTIM
     Dosage: ()
     Route: 058
  7. METHOTREXATE. [Suspect]
     Active Substance: METHOTREXATE
     Indication: ACUTE LYMPHOCYTIC LEUKAEMIA
     Route: 042
  8. FILGRASTIM [Suspect]
     Active Substance: FILGRASTIM
     Indication: ACUTE LYMPHOCYTIC LEUKAEMIA
     Dosage: ()
     Route: 058
  9. BUSULFAN. [Suspect]
     Active Substance: BUSULFAN
     Indication: ACUTE LYMPHOCYTIC LEUKAEMIA
     Route: 042
     Dates: start: 20150904
  10. CYTARABINE/CYTARABINE HYDROCHLORIDE/CYTARABINE OCFOSFATE [Suspect]
     Active Substance: CYTARABINE
     Indication: PRODUCT USED FOR UNKNOWN INDICATION
     Dosage: 4000 MG/M2
     Route: 042
  11. GRANULOCYTE COLONY STIMULATING [Suspect]
     Active Substance: GRANULOCYTE COLONY-STIMULATING FACTOR NOS
     Indication: ACUTE LYMPHOCYTIC LEUKAEMIA
     Dosage: (CYCLE 7), 8 TO HARVEST/ANC GREATER THAN 1.0
     Route: 058
  12. MERCAPTOPURINE/MERCAPTOPURINE ANHYDROUS [Suspect]
     Active Substance: MERCAPTOPURINE
     Indication: ACUTE LYMPHOCYTIC LEUKAEMIA
     Dosage: 60 MG/M2, QD (CYCLIC DAY 1-14)
     Route: 048
  13. FILGRASTIM [Suspect]
     Active Substance: FILGRASTIM
     Dosage: ()
     Route: 058
  14. LENOGRASTIM [Suspect]
     Active Substance: LENOGRASTIM
     Dosage: ()
     Route: 058
  15. CYCLOPHOSPHAMIDE/CYCLOPHOSPHAMIDE MONOHYDRATE [Suspect]
     Active Substance: CYCLOPHOSPHAMIDE
     Indication: ACUTE LYMPHOCYTIC LEUKAEMIA
     Dosage: 300 MG/M2
     Route: 042
  16. FOLINIC ACID [Suspect]
     Active Substance: LEUCOVORIN
     Indication: ACUTE LYMPHOCYTIC LEUKAEMIA
     Route: 042
  17. LENOGRASTIM [Suspect]
     Active Substance: LENOGRASTIM
     Indication: ACUTE LYMPHOCYTIC LEUKAEMIA
     Dosage: 10 MICROG/M2 (CYCLE 7), 8 TO HARVEST/ANC GREATER THAN 1.0 ()
     Route: 058
  18. LENOGRASTIM [Suspect]
     Active Substance: LENOGRASTIM
     Dosage: ()
     Route: 058
  19. FLUDARABINE/FLUDARABINE PHOSPHATE [Suspect]
     Active Substance: FLUDARABINE PHOSPHATE
     Indication: ACUTE LYMPHOCYTIC LEUKAEMIA
     Dosage: ON DAY 3-4-5, CYCLICAL
     Route: 058
     Dates: start: 20150904
  20. GRANULOCYTE COLONY STIMULATING [Suspect]
     Active Substance: GRANULOCYTE COLONY-STIMULATING FACTOR NOS
     Indication: ACUTE LYMPHOCYTIC LEUKAEMIA
     Dosage: 8 TO HARVEST/ANC GREATER THAN 1.0
     Route: 058
  21. DEXAMETHASONE. [Suspect]
     Active Substance: DEXAMETHASONE
     Indication: PRODUCT USED FOR UNKNOWN INDICATION
     Dosage: 5 MG/M2 BID (CYCLIC DAY 1-5 (CYCLE 2)
     Route: 048
  22. CYTARABINE. [Suspect]
     Active Substance: CYTARABINE
     Dosage: 75 MG/M2
     Route: 042
  23. IDARUBICIN [Suspect]
     Active Substance: IDARUBICIN
     Indication: ACUTE LYMPHOCYTIC LEUKAEMIA
     Dosage: DAY 1,2 (CYCLE 1 AND 2), INFUSION?TIME: 30 MIN.
     Route: 042
  24. THIOTEPA. [Suspect]
     Active Substance: THIOTEPA
     Indication: ACUTE LYMPHOCYTIC LEUKAEMIA
     Dosage: 5 MG/KG
     Route: 042
     Dates: start: 20150904

REACTIONS (6)
  - Seizure [Recovered/Resolved]
  - Acute lymphocytic leukaemia recurrent [Unknown]
  - Blood uric acid increased [None]
  - Neurotoxicity [Recovered/Resolved]
  - Blood lactate dehydrogenase increased [None]
  - Off label use [Unknown]
